FAERS Safety Report 19956643 (Version 3)
Quarter: 2021Q4

REPORT INFORMATION
  Report Type: Report from Study
  Country: US (occurrence: US)
  Receive Date: 20211014
  Receipt Date: 20211102
  Transmission Date: 20220303
  Serious: Yes (Other)
  Sender: FDA-Public Use
  Company Number: US-ORGANON-O2110USA000391

PATIENT
  Sex: Female
  Weight: 78.458 kg

DRUGS (2)
  1. IMPLANON [Suspect]
     Active Substance: ETONOGESTREL
     Indication: Contraception
     Dosage: 1 IMPLANT OF 68 MILLIGRAM IN LEFT ARM
     Route: 059
     Dates: start: 20210929, end: 20211004
  2. NEXPLANON [Suspect]
     Active Substance: ETONOGESTREL
     Dosage: 1 IMPLANT
     Route: 059
     Dates: start: 2016, end: 20210929

REACTIONS (5)
  - Device expulsion [Recovered/Resolved]
  - Fall [Recovering/Resolving]
  - Foot fracture [Unknown]
  - Device difficult to use [Recovered/Resolved]
  - Incorrect product administration duration [Unknown]

NARRATIVE: CASE EVENT DATE: 20160101
